FAERS Safety Report 6122292-3 (Version None)
Quarter: 2009Q1

REPORT INFORMATION
  Report Type: 
  Country: None (occurrence: None)
  Receive Date: 20090316
  Receipt Date: 20090302
  Transmission Date: 20090719
  Serious: Yes (Life-Threatening, Hospitalization)
  Sender: FDA-Public Use
  Company Number: ADE2009-0471

PATIENT
  Age: 77 Year
  Sex: Female

DRUGS (10)
  1. CIPROFLOXACIN [Suspect]
     Indication: URINARY TRACT INFECTION
  2. SIMVASTATIN [Suspect]
     Dosage: 40MG, QD
  3. ACETYLSALICYLIC  ACID [Concomitant]
  4. ASPIRIN [Concomitant]
  5. CIMETIDINE HCL [Concomitant]
  6. FUROSEMIDE [Concomitant]
  7. ISOSORBIDE MONONITRATE [Concomitant]
  8. LEVOTHYROXINE [Concomitant]
  9. NICORANDIL [Concomitant]
  10. PINDOLOL [Concomitant]

REACTIONS (3)
  - BLOOD PRESSURE SYSTOLIC INCREASED [None]
  - DRUG INTERACTION [None]
  - RHABDOMYOLYSIS [None]
